FAERS Safety Report 6018532-1 (Version None)
Quarter: 2008Q4

REPORT INFORMATION
  Report Type: 
  Country: None (occurrence: None)
  Receive Date: 20081223
  Receipt Date: 20081204
  Transmission Date: 20090506
  Serious: No
  Sender: FDA-Public Use
  Company Number: US-B.I. PHARMACEUTICALS,INC./RIDGEFIELD-2008-BP-18255BP

PATIENT
  Age: 88 Year
  Sex: Female

DRUGS (5)
  1. MIRAPEX [Suspect]
     Indication: RESTLESS LEGS SYNDROME
     Dosage: .125MG
     Route: 048
     Dates: start: 20080601, end: 20080701
  2. MIRAPEX [Suspect]
     Dosage: .25MG
     Route: 048
     Dates: start: 20080701, end: 20081113
  3. MACROBID [Concomitant]
     Indication: KIDNEY INFECTION
  4. MICROZIDE [Concomitant]
     Indication: HYPERTENSION
  5. CELEXA [Concomitant]
     Indication: DEPRESSION

REACTIONS (2)
  - HALLUCINATION, VISUAL [None]
  - INSOMNIA [None]
